FAERS Safety Report 9931933 (Version 2)
Quarter: 2014Q1

REPORT INFORMATION
  Report Type: Spontaneous
  Country: US (occurrence: None)
  Receive Date: 20140226
  Receipt Date: 20140304
  Transmission Date: 20141002
  Serious: Yes (Hospitalization)
  Sender: FDA-Public Use
  Company Number: HYP201311-000070

PATIENT
  Age: 27 Year
  Sex: Female
  Weight: 90 kg

DRUGS (4)
  1. RAVICTI [Suspect]
     Indication: AMINO ACID METABOLISM DISORDER
     Route: 048
     Dates: start: 201305
  2. L-CITRULLINE [Concomitant]
  3. ONDANSETRON [Concomitant]
  4. PRENATAL VITAMINS [Concomitant]

REACTIONS (14)
  - Hyperammonaemia [None]
  - Thrombophlebitis superficial [None]
  - Ovarian cyst [None]
  - Nausea [None]
  - Vomiting [None]
  - Dehydration [None]
  - Abdominal pain [None]
  - Maternal exposure during pregnancy [None]
  - Pregnancy [None]
  - Abortion induced [None]
  - Venous occlusion [None]
  - Collateral circulation [None]
  - Medical device complication [None]
  - Vomiting [None]
